FAERS Safety Report 5419763-1 (Version None)
Quarter: 2007Q3

REPORT INFORMATION
  Report Type: 
  Country: None (occurrence: None)
  Receive Date: 20070820
  Receipt Date: 20070807
  Transmission Date: 20080115
  Serious: Yes (Other)
  Sender: FDA-Public Use
  Company Number: US-TYCO HEALTHCARE/MALLINCKRODT-T200700911

PATIENT

DRUGS (1)
  1. METHADOSE [Suspect]

REACTIONS (5)
  - CEREBRAL ISCHAEMIA [None]
  - CYANOSIS [None]
  - MIOSIS [None]
  - RESPIRATORY FAILURE [None]
  - UNRESPONSIVE TO STIMULI [None]
